FAERS Safety Report 6622771-6 (Version None)
Quarter: 2010Q1

REPORT INFORMATION
  Report Type: 
  Country: None (occurrence: None)
  Receive Date: 20100304
  Receipt Date: 20100222
  Transmission Date: 20100710
  Serious: Yes (Other)
  Sender: FDA-Public Use
  Company Number: 2010US000206

PATIENT
  Age: 8 Year
  Sex: Female
  Weight: 30 kg

DRUGS (14)
  1. AMBISOME [Suspect]
     Indication: ZYGOMYCOSIS
     Dosage: 100 MG, UID/QD, IV DRIP
     Route: 041
     Dates: start: 20091222
  2. ADONA (CARBAZOCHROME SODIUM SULFONATE) [Concomitant]
  3. ASCORBIC ACID [Concomitant]
  4. ASVERIN (TIPEPIDINE HIBENZATE) [Concomitant]
  5. IMURAN [Concomitant]
  6. INCREMIN (FERRIC PYROPHOSPHATE) [Concomitant]
  7. FAMOTIDINE [Concomitant]
  8. CLARITHROMYCIN [Concomitant]
  9. COTRIM [Concomitant]
  10. PREDNISOLONE [Concomitant]
  11. QVAR [Concomitant]
  12. ROCEPHIN [Concomitant]
  13. MEROPEN (MEROPENEM TRIHYDRATE) [Concomitant]
  14. ZOMETA [Concomitant]

REACTIONS (3)
  - C-REACTIVE PROTEIN INCREASED [None]
  - HYPOKALAEMIA [None]
  - PYREXIA [None]
